FAERS Safety Report 14947151 (Version 3)
Quarter: 2018Q3

REPORT INFORMATION
  Report Type: Spontaneous
  Country: US (occurrence: US)
  Receive Date: 20180529
  Receipt Date: 20180705
  Transmission Date: 20181010
  Serious: No
  Sender: FDA-Public Use
  Company Number: US-B.I. PHARMACEUTICALS,INC./RIDGEFIELD-2018-BI-027417

PATIENT
  Age: 24 Year
  Sex: Male

DRUGS (1)
  1. CATAPRES?TTS [Suspect]
     Active Substance: CLONIDINE
     Indication: HYPERTENSION
     Dosage: PATCH
     Route: 061
     Dates: start: 20180502

REACTIONS (3)
  - Chest pain [Recovered/Resolved]
  - Product quality issue [Unknown]
  - Night sweats [Not Recovered/Not Resolved]

NARRATIVE: CASE EVENT DATE: 201805
